FAERS Safety Report 25397061 (Version 2)
Quarter: 2025Q3

REPORT INFORMATION
  Report Type: Report from Study
  Country: US (occurrence: US)
  Receive Date: 20250604
  Receipt Date: 20250808
  Transmission Date: 20251021
  Serious: No
  Sender: DR REDDYS
  Company Number: US-DRL-USA-USA/2025/05/007215

PATIENT
  Age: 4 Year
  Sex: Female
  Weight: 22.4 kg

DRUGS (1)
  1. JAVYGTOR [Suspect]
     Active Substance: SAPROPTERIN DIHYDROCHLORIDE
     Indication: Phenylketonuria
     Route: 048
     Dates: start: 20250331, end: 20250722

REACTIONS (2)
  - Diarrhoea [Recovered/Resolved]
  - Insomnia [Unknown]
